FAERS Safety Report 9237398 (Version 2)
Quarter: 2013Q2

REPORT INFORMATION
  Report Type: Spontaneous
  Country: US (occurrence: US)
  Receive Date: 20130417
  Receipt Date: 20130426
  Transmission Date: 20140414
  Serious: Yes (Life-Threatening, Hospitalization, Other)
  Sender: FDA-Public Use
  Company Number: CHPA2013US006572

PATIENT
  Age: 62 Year
  Sex: Female

DRUGS (4)
  1. BENEFIBER W/ WHEAT DEXTRIN [Suspect]
     Indication: ABNORMAL FAECES
     Dosage: 3 TSP, BID
     Route: 048
     Dates: start: 200506
  2. CALCIUM CHANNEL BLOCKERS [Concomitant]
     Dosage: UNK, UNK
  3. BETA BLOCKING AGENTS [Concomitant]
     Dosage: UNK, UNK
  4. STOOL SOFTENER [Concomitant]
     Dosage: UNK, UNK
     Dates: start: 2002

REACTIONS (16)
  - Ventricular extrasystoles [Not Recovered/Not Resolved]
  - Oesophageal rupture [Recovered/Resolved]
  - Concomitant disease aggravated [Recovered/Resolved]
  - Rosai-Dorfman syndrome [Not Recovered/Not Resolved]
  - Convulsion [Recovered/Resolved]
  - Hemiparesis [Not Recovered/Not Resolved]
  - Paralysis [Recovering/Resolving]
  - Blindness transient [Recovered/Resolved]
  - Retinal disorder [Recovered/Resolved]
  - Feeling abnormal [Unknown]
  - Loss of consciousness [Unknown]
  - Fall [Unknown]
  - Visual impairment [Recovered/Resolved]
  - Activities of daily living impaired [Recovered/Resolved]
  - Off label use [Unknown]
  - Incorrect dose administered [Unknown]
